FAERS Safety Report 6197024-3 (Version None)
Quarter: 2009Q2

REPORT INFORMATION
  Report Type: 
  Country: None (occurrence: None)
  Receive Date: 20090520
  Receipt Date: 20090518
  Transmission Date: 20091009
  Serious: Yes (Death)
  Sender: FDA-Public Use
  Company Number: US-ASTRAZENECA-2009UW12706

PATIENT
  Age: 80 Year
  Sex: Female
  Weight: 58.1 kg

DRUGS (1)
  1. SEROQUEL [Suspect]
     Route: 048

REACTIONS (3)
  - CARDIAC DISORDER [None]
  - COMA [None]
  - DEMENTIA ALZHEIMER'S TYPE [None]
